FAERS Safety Report 4555414-6 (Version None)
Quarter: 2005Q1

REPORT INFORMATION
  Report Type: 
  Country: None (occurrence: None)
  Receive Date: 20050118
  Receipt Date: 20050118
  Transmission Date: 20050727
  Serious: Yes (Other)
  Sender: FDA-Public Use
  Company Number: None

PATIENT
  Age: 43 Year
  Sex: Female
  Weight: 90.7194 kg

DRUGS (1)
  1. EFFEXOR XR [Suspect]
     Indication: PREMENSTRUAL SYNDROME
     Dosage: 150 MGS ONCE DAILY ORAL
     Route: 048
     Dates: start: 19990415, end: 20041226

REACTIONS (22)
  - ABORTION SPONTANEOUS [None]
  - ALTERED VISUAL DEPTH PERCEPTION [None]
  - ANGER [None]
  - ARTHRALGIA [None]
  - CRYING [None]
  - DEPRESSION [None]
  - DRUG EXPOSURE DURING PREGNANCY [None]
  - DRUG INEFFECTIVE [None]
  - DRUG WITHDRAWAL SYNDROME [None]
  - FEAR [None]
  - FEELING ABNORMAL [None]
  - HYPOAESTHESIA [None]
  - LETHARGY [None]
  - LOSS OF LIBIDO [None]
  - MOOD SWINGS [None]
  - MYALGIA [None]
  - NERVE INJURY [None]
  - NERVOUS SYSTEM DISORDER [None]
  - NIGHTMARE [None]
  - PANIC ATTACK [None]
  - ROAD TRAFFIC ACCIDENT [None]
  - WEIGHT INCREASED [None]
